FAERS Safety Report 25915661 (Version 2)
Quarter: 2025Q4

REPORT INFORMATION
  Report Type: Spontaneous
  Country: AU (occurrence: AU)
  Receive Date: 20251013
  Receipt Date: 20251030
  Transmission Date: 20260117
  Serious: Yes (Life-Threatening, Hospitalization, Other)
  Sender: MYLAN
  Company Number: AU-MYLANLABS-2024M1110759

PATIENT
  Age: 72 Year
  Sex: Female

DRUGS (8)
  1. CLOZARIL [Suspect]
     Active Substance: CLOZAPINE
     Indication: Schizophrenia
     Dosage: 50 MILLIGRAM
     Route: 048
  2. CLOZARIL [Suspect]
     Active Substance: CLOZAPINE
     Dosage: 50 MILLIGRAM
  3. CLOZARIL [Suspect]
     Active Substance: CLOZAPINE
     Dosage: 50 MILLIGRAM
  4. CLOZARIL [Suspect]
     Active Substance: CLOZAPINE
     Dosage: 50 MILLIGRAM
     Route: 048
  5. CLOZARIL [Suspect]
     Active Substance: CLOZAPINE
     Dosage: UNK
     Route: 048
     Dates: start: 20251013, end: 20251020
  6. CLOZARIL [Suspect]
     Active Substance: CLOZAPINE
     Dosage: UNK
     Dates: start: 20251013, end: 20251020
  7. CLOZARIL [Suspect]
     Active Substance: CLOZAPINE
     Dosage: UNK
     Dates: start: 20251013, end: 20251020
  8. CLOZARIL [Suspect]
     Active Substance: CLOZAPINE
     Dosage: UNK
     Route: 048
     Dates: start: 20251013, end: 20251020

REACTIONS (5)
  - Agranulocytosis [Unknown]
  - Myocarditis [Unknown]
  - Haematocrit decreased [Unknown]
  - Haemoglobin decreased [Unknown]
  - Treatment noncompliance [Unknown]

NARRATIVE: CASE EVENT DATE: 20241201
